FAERS Safety Report 12341287 (Version 2)
Quarter: 2016Q2

REPORT INFORMATION
  Report Type: Report from Study
  Country: AU (occurrence: AU)
  Receive Date: 20160506
  Receipt Date: 20160525
  Transmission Date: 20160815
  Serious: Yes (Hospitalization)
  Sender: FDA-Public Use
  Company Number: AU-CELGENEUS-AUS-2016047732

PATIENT
  Age: 78 Year
  Sex: Female
  Weight: 75.6 kg

DRUGS (30)
  1. ABRAXANE [Suspect]
     Active Substance: PACLITAXEL
     Indication: ADENOCARCINOMA PANCREAS
     Route: 041
     Dates: start: 20160316, end: 20160413
  2. ABRAXANE [Suspect]
     Active Substance: PACLITAXEL
     Route: 041
     Dates: start: 20160413, end: 20160511
  3. AFLIBERCEPT [Concomitant]
     Active Substance: AFLIBERCEPT
     Indication: MACULAR DEGENERATION
     Dosage: 40 MILLIGRAM
     Route: 065
     Dates: start: 2013
  4. PICOLAR [Concomitant]
     Indication: CONSTIPATION
     Route: 065
     Dates: start: 20160323, end: 20160324
  5. MIRTAZEPIME [Concomitant]
     Route: 048
     Dates: start: 20160405
  6. GEMCITABINE [Suspect]
     Active Substance: GEMCITABINE\GEMCITABINE HYDROCHLORIDE
     Indication: ADENOCARCINOMA PANCREAS
     Route: 041
     Dates: start: 20160316, end: 20160413
  7. SALBUTAMOL [Concomitant]
     Active Substance: ALBUTEROL
     Indication: ASTHMA
     Route: 055
     Dates: start: 200601
  8. PRAVASTATIN [Concomitant]
     Active Substance: PRAVASTATIN\PRAVASTATIN SODIUM
     Indication: HYPERCHOLESTEROLAEMIA
     Dosage: 25 MICROGRAM
     Route: 048
     Dates: start: 201101
  9. GEMCITABINE [Suspect]
     Active Substance: GEMCITABINE\GEMCITABINE HYDROCHLORIDE
     Route: 041
     Dates: start: 20160413, end: 20160511
  10. ENOXAPARIN [Concomitant]
     Active Substance: ENOXAPARIN
     Indication: PROPHYLAXIS
     Dosage: 2 DOSAGE FORMS
     Route: 058
     Dates: start: 20160210
  11. METOCLOPRAMIDE. [Concomitant]
     Active Substance: METOCLOPRAMIDE
     Indication: NAUSEA
     Dosage: 2 DOSAGE FORMS
     Route: 048
     Dates: start: 20160210
  12. CREON [Concomitant]
     Active Substance: PANCRELIPASE AMYLASE\PANCRELIPASE LIPASE\PANCRELIPASE PROTEASE
     Indication: PRODUCT USED FOR UNKNOWN INDICATION
     Dosage: 40 MILLIGRAM
     Route: 048
     Dates: start: 20160210
  13. HYDROCORTISONE. [Concomitant]
     Active Substance: HYDROCORTISONE
     Indication: PRODUCT USED FOR UNKNOWN INDICATION
     Route: 041
     Dates: start: 20160316
  14. PARACETAMOL [Concomitant]
     Active Substance: ACETAMINOPHEN
     Indication: FEBRILE NEUTROPENIA
     Route: 048
     Dates: start: 20160402
  15. PANTOPRAZOLE [Concomitant]
     Active Substance: PANTOPRAZOLE SODIUM
     Indication: GASTROOESOPHAGEAL REFLUX DISEASE
     Dosage: 75 MICROGRAM
     Route: 048
     Dates: start: 20160210
  16. MIRTAZEPIME [Concomitant]
     Indication: DEPRESSION
     Route: 048
     Dates: start: 20160427
  17. ONDANSETRON [Concomitant]
     Active Substance: ONDANSETRON
     Indication: VOMITING
     Route: 048
     Dates: start: 20160405
  18. SERETIDE [Concomitant]
     Active Substance: FLUTICASONE PROPIONATE\SALMETEROL XINAFOATE
     Indication: ASTHMA
     Route: 055
     Dates: start: 200601
  19. MICROLAX ENEMA [Concomitant]
     Indication: CONSTIPATION
     Route: 065
     Dates: start: 20160320, end: 20160322
  20. KYTRIL [Concomitant]
     Active Substance: GRANISETRON HYDROCHLORIDE
     Indication: PRODUCT USED FOR UNKNOWN INDICATION
     Dosage: 15000 IU (INTERNATIONAL UNIT)
     Route: 041
     Dates: start: 20160316
  21. FILGRASTIM [Concomitant]
     Active Substance: FILGRASTIM
     Indication: NEUTROPENIC SEPSIS
     Route: 058
     Dates: start: 20160502
  22. VITAMIN D3 [Concomitant]
     Active Substance: CHOLECALCIFEROL
     Indication: PRODUCT USED FOR UNKNOWN INDICATION
     Route: 048
     Dates: start: 201503
  23. ONDANSETRON [Concomitant]
     Active Substance: ONDANSETRON
     Indication: NAUSEA
     Dosage: 4-8MG
     Route: 048
     Dates: start: 20160427
  24. THYROXINE [Concomitant]
     Active Substance: LEVOTHYROXINE
     Indication: HYPOTHYROIDISM
     Route: 048
     Dates: start: 200601
  25. FRAGMIN [Concomitant]
     Active Substance: DALTEPARIN SODIUM
     Indication: PULMONARY EMBOLISM
     Route: 041
     Dates: start: 20160316
  26. MOVICOL [Concomitant]
     Active Substance: POLYETHYLENE GLYCOL 3350\POTASSIUM CHLORIDE\SODIUM BICARBONATE\SODIUM CHLORIDE
     Indication: CONSTIPATION
     Dosage: 80 MILLIGRAM
     Route: 048
     Dates: start: 20160319, end: 20160326
  27. COLOXYL + SENNA [Concomitant]
     Indication: CONSTIPATION
     Route: 048
     Dates: start: 20160319, end: 20160326
  28. PREDNISOLONE. [Concomitant]
     Active Substance: PREDNISOLONE
     Indication: PRODUCT USED FOR UNKNOWN INDICATION
     Route: 048
     Dates: start: 20160316
  29. LOPERAMIDE [Concomitant]
     Active Substance: LOPERAMIDE
     Indication: DIARRHOEA
     Route: 065
     Dates: start: 20160327
  30. FILGRASTIM [Concomitant]
     Active Substance: FILGRASTIM
     Indication: FEBRILE NEUTROPENIA
     Route: 048
     Dates: start: 20160402, end: 20160405

REACTIONS (4)
  - Neutropenic sepsis [Recovered/Resolved]
  - Clostridium difficile colitis [Recovered/Resolved]
  - Pyrexia [Recovered/Resolved]
  - Synovial rupture [Not Recovered/Not Resolved]

NARRATIVE: CASE EVENT DATE: 20160423
